FAERS Safety Report 6885686-4 (Version None)
Quarter: 2010Q3

REPORT INFORMATION
  Report Type: 
  Country: None (occurrence: None)
  Receive Date: 20100729
  Receipt Date: 20090311
  Transmission Date: 20110219
  Serious: Yes (Other)
  Sender: FDA-Public Use
  Company Number: US-PFIZER INC-2009181910

PATIENT
  Sex: Female

DRUGS (4)
  1. CELEBREX [Suspect]
     Indication: RHEUMATOID ARTHRITIS
     Dates: start: 20010101, end: 20050101
  2. METHOTREXATE [Concomitant]
     Indication: RHEUMATOID ARTHRITIS
     Dosage: UNK
  3. NAPROXEN [Concomitant]
     Indication: RHEUMATOID ARTHRITIS
     Dosage: UNK
  4. FOLIC ACID [Concomitant]
     Dosage: UNK

REACTIONS (1)
  - DIABETES MELLITUS [None]
